FAERS Safety Report 4268441-3 (Version None)
Quarter: 2004Q1

REPORT INFORMATION
  Report Type: 
  Country: None (occurrence: None)
  Receive Date: 20040108
  Receipt Date: 20031224
  Transmission Date: 20041129
  Serious: Yes (Hospitalization)
  Sender: FDA-Public Use
  Company Number: 183119

PATIENT
  Age: 50 Year
  Sex: Male

DRUGS (1)
  1. AVONEX [Suspect]
     Indication: MULTIPLE SCLEROSIS
     Dosage: 30 MCG QW IM
     Route: 030
     Dates: start: 20031018, end: 20031019

REACTIONS (6)
  - ABASIA [None]
  - CHILLS [None]
  - CONDITION AGGRAVATED [None]
  - DYSSTASIA [None]
  - MULTIPLE SCLEROSIS [None]
  - PYREXIA [None]
